FAERS Safety Report 12247724 (Version 1)
Quarter: 2016Q2

REPORT INFORMATION
  Report Type: Report from Study
  Country: US (occurrence: US)
  Receive Date: 20160408
  Receipt Date: 20160408
  Transmission Date: 20160815
  Serious: Yes (Hospitalization)
  Sender: FDA-Public Use
  Company Number: US-BRISTOL-MYERS SQUIBB COMPANY-17358433

PATIENT
  Age: 59 Year
  Sex: Female
  Weight: 97.2 kg

DRUGS (1)
  1. IPILIMUMAB [Suspect]
     Active Substance: IPILIMUMAB
     Indication: MALIGNANT MELANOMA
     Dosage: LAST DOSE-24JAN13  TOTAL DOSE IN 3RD COURSE: 292MG
     Route: 042
     Dates: start: 20121211

REACTIONS (2)
  - Headache [Unknown]
  - Hypophysitis [Unknown]

NARRATIVE: CASE EVENT DATE: 20130201
